FAERS Safety Report 9925206 (Version 1)
Quarter: 2014Q1

REPORT INFORMATION
  Report Type: Spontaneous
  Country: US (occurrence: None)
  Receive Date: 20140225
  Receipt Date: 20140225
  Transmission Date: 20141002
  Serious: Yes (Life-Threatening)
  Sender: FDA-Public Use
  Company Number: None

PATIENT
  Age: 73 Year
  Sex: Female
  Weight: 76.7 kg

DRUGS (5)
  1. XARELTO [Suspect]
     Indication: ATRIAL FLUTTER
     Dosage: ONE PILL
     Route: 048
  2. DROPAFENONE (RYTHMOL SR) [Concomitant]
  3. ROSUVASTATIN (CRESTOR) ... [Concomitant]
  4. METOPROLOL (LOPRESSOR) [Concomitant]
  5. GABAPENTIN (NEURONTIN) [Concomitant]

REACTIONS (3)
  - Speech disorder [None]
  - Muscular weakness [None]
  - Muscular weakness [None]
